FAERS Safety Report 10019584 (Version 3)
Quarter: 2014Q1

REPORT INFORMATION
  Report Type: Report from Study
  Country: CA (occurrence: CA)
  Receive Date: 20140318
  Receipt Date: 20140321
  Transmission Date: 20141002
  Serious: Yes (Other)
  Sender: FDA-Public Use
  Company Number: CA-ABBVIE-14P-028-1207749-00

PATIENT
  Sex: Female
  Weight: 43.58 kg

DRUGS (1)
  1. HUMIRA [Suspect]
     Indication: COLITIS ULCERATIVE
     Route: 058
     Dates: start: 20130528, end: 2014

REACTIONS (3)
  - Colitis ulcerative [Not Recovered/Not Resolved]
  - Neoplasm malignant [Unknown]
  - Drug ineffective [Unknown]
